FAERS Safety Report 9033135 (Version 3)
Quarter: 2013Q2

REPORT INFORMATION
  Report Type: Report from Study
  Country: FR (occurrence: FR)
  Receive Date: 20130128
  Receipt Date: 20130510
  Transmission Date: 20140414
  Serious: Yes (Hospitalization)
  Sender: FDA-Public Use
  Company Number: FR-ROCHE-1132165

PATIENT
  Age: 53 Year
  Sex: Female
  Weight: 78 kg

DRUGS (25)
  1. RHUPH20/RITUXIMAB [Suspect]
     Indication: CHRONIC LYMPHOCYTIC LEUKAEMIA
     Dosage: DATE OF LAST DOSE (1870 MG) OF RITUXIMAB: 16/MAY/2011
     Route: 058
     Dates: start: 20110418
  2. BACTRIM FORTE [Concomitant]
     Indication: INFECTION PROPHYLAXIS
     Route: 065
     Dates: start: 20110120, end: 20111123
  3. LEDERFOLINE [Concomitant]
     Indication: PROPHYLAXIS
     Route: 065
     Dates: start: 20110120, end: 20120215
  4. ZELITREX [Concomitant]
     Indication: INFECTION PROPHYLAXIS
     Route: 065
     Dates: start: 20110120, end: 201204
  5. METFORMIN [Concomitant]
     Indication: DIABETES MELLITUS
     Route: 065
     Dates: start: 20101224, end: 20111203
  6. DIAMICRON [Concomitant]
     Indication: DIABETES MELLITUS
     Route: 065
     Dates: end: 20120215
  7. ALDACTAZINE [Concomitant]
     Indication: HYPERTENSION
  8. TAHOR [Concomitant]
     Indication: HYPERTENSION
  9. JANUVIA [Concomitant]
     Indication: DIABETES MELLITUS
     Route: 065
     Dates: start: 20101224, end: 20111203
  10. PARACETAMOL [Concomitant]
     Indication: PREMEDICATION
     Route: 065
     Dates: start: 20101223, end: 20110516
  11. METHYLPREDNISOLONE [Concomitant]
     Indication: PREMEDICATION
     Route: 065
     Dates: start: 20101223, end: 20110317
  12. HYDROXYZINE [Concomitant]
     Indication: PREMEDICATION
     Route: 065
     Dates: start: 20101223, end: 20110317
  13. RACECADOTRIL [Concomitant]
     Indication: DIARRHOEA
     Route: 065
     Dates: start: 20110419, end: 20110425
  14. CEFTRIAXONE [Concomitant]
     Indication: FEBRILE NEUTROPENIA
     Route: 065
     Dates: start: 20111118, end: 20111127
  15. LEVOFLOXACINE [Concomitant]
     Indication: FEBRILE NEUTROPENIA
     Route: 065
     Dates: start: 20111118, end: 20111127
  16. LENOGRASTIM [Concomitant]
     Indication: FEBRILE NEUTROPENIA
     Route: 065
     Dates: start: 20111119, end: 20111212
  17. CEFIXIME [Concomitant]
     Indication: INFECTION PROPHYLAXIS
     Route: 065
     Dates: start: 20111114, end: 20111118
  18. JANUMET [Concomitant]
     Indication: DIABETES MELLITUS
     Route: 065
     Dates: start: 20111203
  19. INSULIN [Concomitant]
     Indication: DIABETES MELLITUS
     Route: 065
     Dates: start: 20111203
  20. METOCLOPRAMIDE [Concomitant]
     Indication: PROPHYLAXIS OF NAUSEA AND VOMITING
     Route: 065
     Dates: start: 20110319, end: 20110614
  21. LENOGRASTIM [Concomitant]
     Indication: NEUTROPENIA
     Route: 065
     Dates: start: 20111227, end: 20120210
  22. REPAGLINIDE [Concomitant]
     Indication: DIABETES MELLITUS
     Route: 065
     Dates: start: 20120216
  23. IMMUNOGLOBULIN [Concomitant]
     Indication: HYPOGAMMAGLOBULINAEMIA
     Route: 065
     Dates: start: 20120215
  24. DEXCHLORPHENIRAMINE [Concomitant]
     Indication: PREMEDICATION
     Route: 065
     Dates: start: 20110418, end: 20110516
  25. ALLOPURINOL [Concomitant]
     Indication: PROPHYLAXIS
     Route: 065
     Dates: start: 20110319, end: 20110519

REACTIONS (1)
  - Osteitis [Recovered/Resolved]
